FAERS Safety Report 25980603 (Version 2)
Quarter: 2025Q4

REPORT INFORMATION
  Report Type: Spontaneous
  Country: US (occurrence: US)
  Receive Date: 20251030
  Receipt Date: 20251105
  Transmission Date: 20260117
  Serious: Yes (Hospitalization, Other)
  Sender: PFIZER
  Company Number: US-PFIZER INC-PV202500126243

PATIENT
  Age: 15 Year
  Sex: Male

DRUGS (1)
  1. NIFEDIPINE [Suspect]
     Active Substance: NIFEDIPINE
     Indication: Hypertension
     Dosage: 30 MG
     Dates: start: 202206

REACTIONS (5)
  - Weight decreased [Recovered/Resolved]
  - Gingival hypertrophy [Recovered/Resolved]
  - Tonsillar hypertrophy [Recovered/Resolved]
  - Mastication disorder [Recovered/Resolved]
  - Sleep-related breathing disorder [Unknown]

NARRATIVE: CASE EVENT DATE: 20230101
